FAERS Safety Report 6564152-X (Version None)
Quarter: 2010Q1

REPORT INFORMATION
  Report Type: 
  Country: None (occurrence: None)
  Receive Date: 20100131
  Receipt Date: 20100125
  Transmission Date: 20100710
  Serious: No
  Sender: FDA-Public Use
  Company Number: US-ALLERGAN-1000924US

PATIENT
  Age: 26 Year
  Sex: Female

DRUGS (2)
  1. BOTOX COSMETIC [Suspect]
     Indication: SKIN WRINKLING
     Dosage: 17 UNITS, SINGLE
     Route: 030
     Dates: start: 20100115, end: 20100115
  2. METROGEL [Concomitant]
     Indication: ROSACEA

REACTIONS (9)
  - CHEST DISCOMFORT [None]
  - PAIN IN EXTREMITY [None]
  - PANIC ATTACK [None]
  - PYREXIA [None]
  - RASH [None]
  - SENSATION OF HEAVINESS [None]
  - SWELLING FACE [None]
  - SWOLLEN TONGUE [None]
  - WEIGHT DECREASED [None]
